FAERS Safety Report 7174152-7 (Version None)
Quarter: 2010Q4

REPORT INFORMATION
  Report Type: 
  Country: None (occurrence: None)
  Receive Date: 20101219
  Receipt Date: 20100320
  Transmission Date: 20110411
  Serious: Yes (Other)
  Sender: FDA-Public Use
  Company Number: US-AMGEN-QUU401097

PATIENT

DRUGS (2)
  1. ENBREL [Suspect]
     Indication: RHEUMATOID ARTHRITIS
     Dosage: 50 MG, QWK
     Route: 058
  2. METHOTREXATE [Concomitant]
     Dosage: 2.5 MG, 4 TIMES/WK

REACTIONS (8)
  - ARTHRITIS [None]
  - DEPRESSED MOOD [None]
  - FATIGUE [None]
  - LACRIMATION INCREASED [None]
  - NODULE ON EXTREMITY [None]
  - PAIN OF SKIN [None]
  - SINUSITIS [None]
  - THERAPEUTIC RESPONSE DECREASED [None]
